FAERS Safety Report 11004270 (Version 4)
Quarter: 2016Q1

REPORT INFORMATION
  Report Type: Spontaneous
  Country: FR (occurrence: FR)
  Receive Date: 20150407
  Receipt Date: 20160201
  Transmission Date: 20160525
  Serious: Yes (Life-Threatening, Hospitalization)
  Sender: FDA-Public Use
  Company Number: FR-000032

PATIENT
  Age: 6 Year
  Sex: Female

DRUGS (2)
  1. BACTRIM [Concomitant]
     Active Substance: SULFAMETHOXAZOLE\TRIMETHOPRIM
  2. PURIXAN [Suspect]
     Active Substance: MERCAPTOPURINE
     Indication: ACUTE LYMPHOCYTIC LEUKAEMIA

REACTIONS (15)
  - Mucosal inflammation [Recovered/Resolved]
  - Hepatic function abnormal [Unknown]
  - Accidental overdose [Recovered/Resolved]
  - Respiratory distress [Recovered/Resolved]
  - Abdominal pain [Unknown]
  - Cholestasis [Unknown]
  - Aplastic anaemia [Recovered/Resolved]
  - Diarrhoea [Recovered/Resolved]
  - Bone marrow failure [Recovered/Resolved]
  - Proctitis [Recovered/Resolved]
  - Drug administration error [Recovered/Resolved]
  - Coagulopathy [Unknown]
  - Vomiting [Recovered/Resolved]
  - Hepatocellular injury [Unknown]
  - Pneumonia [Recovered/Resolved]

NARRATIVE: CASE EVENT DATE: 20150214
